FAERS Safety Report 20385536 (Version 1)
Quarter: 2022Q1

REPORT INFORMATION
  Report Type: Spontaneous
  Country: US (occurrence: US)
  Receive Date: 20220127
  Receipt Date: 20220127
  Transmission Date: 20220423
  Serious: Yes (Other)
  Sender: FDA-Public Use
  Company Number: US-ALLERGAN-2122484US

PATIENT
  Age: 85 Year
  Sex: Male

DRUGS (1)
  1. BOTOX [Suspect]
     Active Substance: ONABOTULINUMTOXINA
     Indication: Hypertonic bladder
     Dosage: UNK, SINGLE
     Dates: start: 20210426, end: 20210426

REACTIONS (10)
  - Urinary retention [Not Recovered/Not Resolved]
  - Chromaturia [Recovered/Resolved]
  - Urine viscosity abnormal [Recovered/Resolved]
  - Condition aggravated [Not Recovered/Not Resolved]
  - Groin pain [Not Recovered/Not Resolved]
  - Myalgia [Not Recovered/Not Resolved]
  - Post procedural haematuria [Recovered/Resolved]
  - Dysphonia [Not Recovered/Not Resolved]
  - Asthenia [Not Recovered/Not Resolved]
  - Drug ineffective [Unknown]

NARRATIVE: CASE EVENT DATE: 20210426
